FAERS Safety Report 6080539-6 (Version None)
Quarter: 2009Q1

REPORT INFORMATION
  Report Type: 
  Country: None (occurrence: None)
  Receive Date: 20090217
  Receipt Date: 20090206
  Transmission Date: 20090719
  Serious: Yes (Hospitalization)
  Sender: FDA-Public Use
  Company Number: A0768733A

PATIENT
  Age: 67 Year
  Sex: Female
  Weight: 76.8 kg

DRUGS (3)
  1. AVANDIA [Suspect]
     Dosage: 8MG PER DAY
     Route: 065
     Dates: start: 20040101, end: 20080802
  2. METFORMIN HCL [Concomitant]
     Dates: start: 20040101, end: 20080802
  3. LANTUS [Concomitant]
     Dates: start: 20020101

REACTIONS (1)
  - MYOCARDIAL INFARCTION [None]
